FAERS Safety Report 10368360 (Version 1)
Quarter: 2014Q1

REPORT INFORMATION
  Report Type: Spontaneous
  Country: US (occurrence: None)
  Receive Date: 20140306
  Receipt Date: 20140306
  Transmission Date: 20141002
  Serious: Yes (Hospitalization, Other)
  Sender: FDA-Public Use
  Company Number: 163-21880-13022783

PATIENT
  Age: 63 Year
  Sex: Male
  Weight: 111.59 kg

DRUGS (5)
  1. REVLIMID [Suspect]
     Indication: PLASMA CELL MYELOMA
     Dosage: 11.25 MG, 21 IN 28 D, PO
     Route: 048
     Dates: start: 20121226
  2. WARFARIN (WARFARIN) [Concomitant]
  3. BYSTOLIC (NEBIVOLOL HYDROCHLORIDE) [Concomitant]
  4. ASPIRIN (ACETYLSALICYLIC ACID) [Concomitant]
  5. CENTRUM (CENTRUM) (TABLETS) [Concomitant]

REACTIONS (2)
  - Thrombosis [None]
  - Heart rate decreased [None]
